FAERS Safety Report 9274458 (Version 2)
Quarter: 2013Q2

REPORT INFORMATION
  Report Type: Spontaneous
  Country: US (occurrence: US)
  Receive Date: 20130507
  Receipt Date: 20130617
  Transmission Date: 20140414
  Serious: Yes (Hospitalization)
  Sender: FDA-Public Use
  Company Number: US-AMGEN-USASP2013031212

PATIENT
  Age: 51 Year
  Sex: Female
  Weight: 69.39 kg

DRUGS (1)
  1. ENBREL [Suspect]
     Indication: RHEUMATOID ARTHRITIS
     Dosage: 50 MG, 2 TIMES/WK
     Dates: end: 201304

REACTIONS (16)
  - Subarachnoid haemorrhage [Recovered/Resolved]
  - Pancreatitis acute [Recovered/Resolved]
  - Clostridium difficile infection [Recovered/Resolved]
  - Colitis [Recovered/Resolved]
  - Fall [Recovered/Resolved]
  - Head injury [Recovered/Resolved]
  - Vomiting [Recovered/Resolved]
  - Cerebral thrombosis [Recovered/Resolved]
  - Headache [Recovered/Resolved]
  - Memory impairment [Not Recovered/Not Resolved]
  - Oedema peripheral [Not Recovered/Not Resolved]
  - Ear discomfort [Not Recovered/Not Resolved]
  - Erythema [Not Recovered/Not Resolved]
  - Sensory loss [Not Recovered/Not Resolved]
  - Animal bite [Recovered/Resolved]
  - Discomfort [Not Recovered/Not Resolved]
